FAERS Safety Report 5026731-0 (Version None)
Quarter: 2006Q2

REPORT INFORMATION
  Report Type: 
  Country: None (occurrence: None)
  Receive Date: 20060615
  Receipt Date: 20060608
  Transmission Date: 20061013
  Serious: Yes (Other)
  Sender: FDA-Public Use
  Company Number: US-JNJFOC-20060602394

PATIENT

DRUGS (3)
  1. ULTRAM [Suspect]
     Indication: DRUG USE FOR UNKNOWN INDICATION
  2. DEXTROMETHORPHAN [Interacting]
     Indication: DRUG USE FOR UNKNOWN INDICATION
  3. BENADRYL [Interacting]
     Indication: DRUG USE FOR UNKNOWN INDICATION

REACTIONS (3)
  - DRUG INTERACTION [None]
  - GRAND MAL CONVULSION [None]
  - INTENTIONAL OVERDOSE [None]
